FAERS Safety Report 21039777 (Version 1)
Quarter: 2022Q3

REPORT INFORMATION
  Report Type: Spontaneous
  Country: CA (occurrence: CA)
  Receive Date: 20220704
  Receipt Date: 20220704
  Transmission Date: 20221027
  Serious: Yes (Other)
  Sender: FDA-Public Use
  Company Number: CA-ELI_LILLY_AND_COMPANY-CA202206011754

PATIENT
  Sex: Female

DRUGS (17)
  1. OLANZAPINE [Interacting]
     Active Substance: OLANZAPINE
     Indication: Mood altered
     Dosage: UNK UNK, UNKNOWN
     Route: 065
  2. ACETAMINOPHEN [Interacting]
     Active Substance: ACETAMINOPHEN
     Indication: Pyrexia
     Dosage: UNK UNK, UNKNOWN
     Route: 065
  3. ACETAMINOPHEN [Interacting]
     Active Substance: ACETAMINOPHEN
     Indication: Pain
     Dosage: 2 DOSAGE FORM, OTHER (ONE EVERY 12 H)
     Route: 065
  4. ALUMINUM HYDROXIDE [Interacting]
     Active Substance: ALUMINUM HYDROXIDE
     Indication: Abdominal discomfort
     Dosage: UNK UNK, UNKNOWN
     Route: 048
  5. AMLODIPINE [Interacting]
     Active Substance: AMLODIPINE BESYLATE
     Indication: Product used for unknown indication
     Dosage: 1 DOSAGE FORM, DAILY
     Route: 065
  6. ARIPIPRAZOLE [Interacting]
     Active Substance: ARIPIPRAZOLE
     Indication: Product used for unknown indication
     Dosage: UNK UNK, UNKNOWN
     Route: 065
  7. CHOLECALCIFEROL [Interacting]
     Active Substance: CHOLECALCIFEROL
     Indication: Product used for unknown indication
     Dosage: UNK UNK, UNKNOWN
     Route: 065
  8. CLOTRIMAZOLE [Interacting]
     Active Substance: CLOTRIMAZOLE
     Indication: Rash
     Dosage: UNK UNK, UNKNOWN
     Route: 065
  9. CLOZAPINE [Interacting]
     Active Substance: CLOZAPINE
     Indication: Product used for unknown indication
     Dosage: 1 DOSAGE FORM, DAILY
     Route: 065
  10. CLOZAPINE [Interacting]
     Active Substance: CLOZAPINE
     Dosage: 3 DOSAGE FORM, DAILY
     Route: 065
  11. CONJUGATED ESTROGENS [Interacting]
     Active Substance: ESTROGENS, CONJUGATED
     Indication: Product used for unknown indication
     Dosage: UNK UNK, UNKNOWN
     Route: 065
  12. ESTRADIOL [Interacting]
     Active Substance: ESTRADIOL
     Indication: Product used for unknown indication
     Dosage: UNK UNK, UNKNOWN
     Route: 067
  13. LEVOTHYROXINE SODIUM [Interacting]
     Active Substance: LEVOTHYROXINE SODIUM
     Indication: Product used for unknown indication
     Dosage: UNK UNK, UNKNOWN
     Route: 065
  14. RANITIDINE [Interacting]
     Active Substance: RANITIDINE
     Indication: Product used for unknown indication
     Dosage: 150 MG, OTHER
     Route: 065
  15. REXULTI [Interacting]
     Active Substance: BREXPIPRAZOLE
     Indication: Product used for unknown indication
     Dosage: UNK UNK, UNKNOWN
     Route: 065
  16. VALPROIC ACID [Interacting]
     Active Substance: VALPROIC ACID
     Indication: Product used for unknown indication
     Dosage: UNK UNK, UNKNOWN
     Route: 065
  17. ZOPICLONE [Interacting]
     Active Substance: ZOPICLONE
     Indication: Insomnia
     Dosage: UNK UNK, DAILY
     Route: 065

REACTIONS (5)
  - Schizoaffective disorder [Unknown]
  - Drug interaction [Unknown]
  - Drug level increased [Unknown]
  - Product use issue [Unknown]
  - Electrocardiogram QT prolonged [Unknown]
